FAERS Safety Report 11745788 (Version 3)
Quarter: 2016Q1

REPORT INFORMATION
  Report Type: Report from Study
  Country: JP (occurrence: JP)
  Receive Date: 20151117
  Receipt Date: 20160302
  Transmission Date: 20160525
  Serious: Yes (Hospitalization)
  Sender: FDA-Public Use
  Company Number: JP-EISAI MEDICAL RESEARCH-EC-2015-012017

PATIENT
  Age: 81 Year
  Sex: Female
  Weight: 56 kg

DRUGS (8)
  1. LENVIMA [Suspect]
     Active Substance: LENVATINIB
     Route: 048
     Dates: start: 20150925, end: 20151102
  2. BESOFTEN [Concomitant]
     Active Substance: SODIUM ALGINATE
  3. CALBLOCK [Concomitant]
     Active Substance: AZELNIDIPINE
  4. LEVOTHYROXINE SODIUM HYDRATE [Concomitant]
  5. MAINTATE [Concomitant]
     Active Substance: BISOPROLOL FUMARATE
  6. LENVIMA [Suspect]
     Active Substance: LENVATINIB
     Indication: PAPILLARY THYROID CANCER
     Route: 048
     Dates: start: 20150826, end: 20150902
  7. LENVIMA [Suspect]
     Active Substance: LENVATINIB
     Route: 048
     Dates: start: 20150909, end: 20150917
  8. MICOMBI [Concomitant]
     Active Substance: HYDROCHLOROTHIAZIDE\TELMISARTAN

REACTIONS (1)
  - Renal disorder [Recovering/Resolving]

NARRATIVE: CASE EVENT DATE: 20150831
